FAERS Safety Report 4810083-2 (Version None)
Quarter: 2005Q4

REPORT INFORMATION
  Report Type: 
  Country: None (occurrence: None)
  Receive Date: 20051024
  Receipt Date: 20051024
  Transmission Date: 20060501
  Serious: Yes (Life-Threatening, Hospitalization)
  Sender: FDA-Public Use
  Company Number: None

PATIENT
  Sex: Female
  Weight: 56.6996 kg

DRUGS (1)
  1. ORTHO EVRA [Suspect]
     Indication: CONTRACEPTION
     Dosage: 1 PATCH ONCE A WEEK FOR 3 WEEK OFF 1 WEEK TRANSDERMAL
     Route: 062
     Dates: start: 20020615, end: 20051010

REACTIONS (7)
  - CARDIAC DISORDER [None]
  - HEPATIC NEOPLASM [None]
  - NEOPLASM MALIGNANT [None]
  - PULMONARY EMBOLISM [None]
  - STRESS [None]
  - SUPRAVENTRICULAR TACHYCARDIA [None]
  - VENTRICULAR EXTRASYSTOLES [None]
